APPROVED DRUG PRODUCT: STERILE WATER FOR INJECTION IN PLASTIC CONTAINER
Active Ingredient: STERILE WATER FOR INJECTION
Strength: 100%
Dosage Form/Route: LIQUID;N/A
Application: A088400 | Product #001 | TE Code: AP
Applicant: FRESENIUS KABI USA LLC
Approved: Jan 16, 1984 | RLD: No | RS: No | Type: RX